FAERS Safety Report 10743120 (Version 1)
Quarter: 2015Q1

REPORT INFORMATION
  Report Type: Spontaneous
  Country: US (occurrence: US)
  Receive Date: 20150127
  Receipt Date: 20150127
  Transmission Date: 20150721
  Serious: No
  Sender: FDA-Public Use
  Company Number: US-GLAXOSMITHKLINE-A1078452A

PATIENT

DRUGS (2)
  1. WELLBUTRIN XL [Suspect]
     Active Substance: BUPROPION HYDROCHLORIDE
     Indication: DEPRESSION
     Dosage: 100 MG PER DAY
     Route: 065
  2. TETRABENAZINE [Interacting]
     Active Substance: TETRABENAZINE
     Indication: PRODUCT USED FOR UNKNOWN INDICATION
     Dosage: 12.5 MG THREE TIMES PER DAY, TOTAL DAILY DOSE OF 37.5 MG
     Route: 048
     Dates: start: 20110514

REACTIONS (3)
  - Dizziness [Unknown]
  - Diastolic hypotension [Unknown]
  - Drug interaction [Unknown]

NARRATIVE: CASE EVENT DATE: 20140506
